FAERS Safety Report 9639725 (Version 1)
Quarter: 2013Q4

REPORT INFORMATION
  Report Type: Spontaneous
  Country: US (occurrence: None)
  Receive Date: 20131021
  Receipt Date: 20131021
  Transmission Date: 20140711
  Serious: Yes (Life-Threatening)
  Sender: FDA-Public Use
  Company Number: None

PATIENT
  Age: 77 Year
  Sex: Female
  Weight: 68.49 kg

DRUGS (11)
  1. MIRTAZAPINE [Suspect]
     Indication: SLEEP DISORDER
     Route: 048
     Dates: start: 20130904, end: 20130907
  2. LEVOTHYROXINE [Concomitant]
  3. AMLODYINE [Concomitant]
  4. TOPROL XL [Concomitant]
  5. CELEXA [Concomitant]
  6. MIRTAZAPINE [Concomitant]
  7. CLINDAMYCIN [Concomitant]
  8. TOP CARE OR TYLENOL [Concomitant]
  9. MAGNISIUM [Concomitant]
  10. DULCOLAX [Concomitant]
  11. D [Concomitant]

REACTIONS (3)
  - Suicidal ideation [None]
  - Fatigue [None]
  - Unevaluable event [None]
